FAERS Safety Report 8768158 (Version 2)
Quarter: 2012Q4

REPORT INFORMATION
  Report Type: Report from Study
  Country: BR (occurrence: BR)
  Receive Date: 20120904
  Receipt Date: 20120904
  Transmission Date: 20130627
  Serious: Yes (Life-Threatening, Hospitalization)
  Sender: FDA-Public Use
  Company Number: BR-009507513-1208BRA010848

PATIENT

DRUGS (16)
  1. BLINDED EFAVIRENZ [Suspect]
     Indication: HIV INFECTION
     Dosage: 600 mg, qd
     Route: 048
     Dates: start: 20110902, end: 20110914
  2. BLINDED EMTRICITABINE(+)TENOFOVIR DISOPROZIL FUMARATE [Suspect]
     Indication: HIV INFECTION
     Dosage: 600 mg, qd
     Route: 048
     Dates: start: 20110902, end: 20110914
  3. BLINDED PLACEBO [Suspect]
     Indication: HIV INFECTION
     Dosage: 600 mg, qd
     Route: 048
     Dates: start: 20110902, end: 20110914
  4. BLINDED POST TRIAL THERAPY [Suspect]
     Indication: HIV INFECTION
     Dosage: 600 mg, qd
     Route: 048
     Dates: start: 20110902, end: 20110914
  5. BLINDED PRE TRIAL THERAPY [Suspect]
     Indication: HIV INFECTION
     Dosage: 600 mg, qd
     Route: 048
     Dates: start: 20110902, end: 20110914
  6. LAMIVUDINE [Suspect]
     Indication: HIV INFECTION
     Dosage: 150 mg, q12h
     Route: 048
     Dates: start: 20110902
  7. ZIDOVUDINE [Suspect]
     Indication: HIV INFECTION
     Dosage: 300 mg, q12h
     Route: 048
  8. TRYPTANOL [Suspect]
     Route: 065
  9. ATAZANAVIR SULFATE [Suspect]
     Indication: HIV INFECTION
     Dosage: 400 mg, qd
     Route: 048
     Dates: start: 20111007
  10. AMITRIPTYLINE HYDROCHLORIDE [Concomitant]
     Dosage: UNK
  11. METAMIZOLE [Concomitant]
     Indication: HEADACHE
     Dosage: UNK
     Route: 048
     Dates: start: 20100314
  12. VENLAFAXINE HYDROCHLORIDE [Concomitant]
     Indication: ANXIETY
     Dosage: UNK, qd
     Route: 048
     Dates: start: 20120605
  13. CARBAMAZEPINE [Concomitant]
     Indication: ANXIETY
     Dosage: UNK, q12h
     Route: 048
     Dates: start: 20120605
  14. ACETAZOLAMIDE [Concomitant]
     Indication: HYDROCEPHALUS
     Dosage: UNK
     Route: 048
     Dates: start: 201206, end: 20120814
  15. MEDROXYPROGESTERONE ACETATE [Concomitant]
     Indication: CONTRACEPTION
     Dosage: UNK, qm3
     Route: 030
     Dates: start: 200906, end: 20120601
  16. TENOXICAM [Concomitant]
     Dosage: UNK
     Dates: start: 20120814, end: 20120814

REACTIONS (1)
  - Central nervous system lesion [Recovering/Resolving]
